FAERS Safety Report 9440375 (Version 1)
Quarter: 2013Q3

REPORT INFORMATION
  Report Type: Spontaneous
  Country: US (occurrence: US)
  Receive Date: 20130805
  Receipt Date: 20130805
  Transmission Date: 20140515
  Serious: Yes (Other)
  Sender: FDA-Public Use
  Company Number: US-PURDUE-USA-2013-0103187

PATIENT
  Age: 54 Year
  Sex: Male

DRUGS (1)
  1. INTERMEZZO [Suspect]
     Indication: MIDDLE INSOMNIA
     Dosage: 3.5 MG, PRN
     Route: 060
     Dates: start: 20130510, end: 20130529

REACTIONS (2)
  - Rash [Unknown]
  - Skin exfoliation [Unknown]
